FAERS Safety Report 20478037 (Version 1)
Quarter: 2022Q1

REPORT INFORMATION
  Report Type: Other
  Country: None (occurrence: IT)
  Receive Date: 20220216
  Receipt Date: 20220216
  Transmission Date: 20220424
  Serious: Yes (Other)
  Sender: FDA-Public Use
  Company Number: IT-Ajanta Pharma USA Inc.-2125925

PATIENT
  Age: 72 Year
  Sex: Male

DRUGS (2)
  1. CLARITHROMYCIN [Suspect]
     Active Substance: CLARITHROMYCIN
     Indication: Post procedural infection
  2. LACIDIPINE [Suspect]
     Active Substance: LACIDIPINE

REACTIONS (2)
  - Scrotal oedema [Recovered/Resolved]
  - Drug interaction [Recovered/Resolved]
